FAERS Safety Report 9686353 (Version 2)
Quarter: 2014Q2

REPORT INFORMATION
  Report Type: Spontaneous
  Country: US (occurrence: US)
  Receive Date: 20131113
  Receipt Date: 20140424
  Transmission Date: 20141212
  Serious: Yes (Death, Life-Threatening, Hospitalization)
  Sender: FDA-Public Use
  Company Number: US-B.I. PHARMACEUTICALS,INC./RIDGEFIELD-2013-BI-36411BP

PATIENT
  Sex: Female
  Weight: 70.45 kg

DRUGS (8)
  1. PRADAXA [Suspect]
     Indication: CEREBROVASCULAR ACCIDENT PROPHYLAXIS
     Dosage: 300 MG
     Route: 065
     Dates: end: 20120329
  2. AMLODIPINE [Concomitant]
     Route: 065
  3. MAGNESIUM OXIDE [Concomitant]
     Route: 065
  4. PROTONIX [Concomitant]
     Route: 065
  5. CRESTOR [Concomitant]
     Route: 065
  6. LISINOPRIL [Concomitant]
     Route: 065
  7. ZETIA [Concomitant]
     Route: 065
  8. ASPIRIN [Concomitant]
     Route: 065

REACTIONS (12)
  - Pulmonary haemorrhage [Fatal]
  - Cardiogenic shock [Fatal]
  - Pulseless electrical activity [Unknown]
  - Gastrointestinal haemorrhage [Recovered/Resolved]
  - Cardiac tamponade [Recovered/Resolved]
  - Retroperitoneal haemorrhage [Unknown]
  - Pericardial effusion [Unknown]
  - Haemorrhagic anaemia [Unknown]
  - Coagulopathy [Unknown]
  - Shock haemorrhagic [Unknown]
  - Hypovolaemic shock [Unknown]
  - Renal failure acute [Unknown]
